FAERS Safety Report 5531482-X (Version None)
Quarter: 2007Q4

REPORT INFORMATION
  Report Type: 
  Country: None (occurrence: None)
  Receive Date: 20071203
  Receipt Date: 20071120
  Transmission Date: 20080405
  Serious: Yes (Hospitalization, Other)
  Sender: FDA-Public Use
  Company Number: CZ-ELI_LILLY_AND_COMPANY-CZ200711005257

PATIENT
  Age: 38 Year
  Sex: Male

DRUGS (4)
  1. OLANZAPINE [Suspect]
     Indication: SCHIZOPHRENIA, PARANOID TYPE
     Dosage: 15 MG, DAILY (1/D)
     Route: 048
     Dates: start: 20051101, end: 20070822
  2. ZOLEPTIL [Concomitant]
     Indication: SCHIZOPHRENIA, PARANOID TYPE
     Dosage: 100 MG, DAILY (1/D)
     Route: 048
     Dates: end: 20070801
  3. TISERCIN [Concomitant]
     Indication: SCHIZOPHRENIA, PARANOID TYPE
     Dosage: UNK, EACH EVENING
     Route: 048
     Dates: end: 20070801
  4. DETRALEX [Concomitant]
     Indication: VARICOSE VEIN
     Route: 048
     Dates: start: 20060101

REACTIONS (4)
  - DEEP VEIN THROMBOSIS [None]
  - PHLEBITIS SUPERFICIAL [None]
  - PULMONARY EMBOLISM [None]
  - WEIGHT INCREASED [None]
